FAERS Safety Report 24877790 (Version 1)
Quarter: 2025Q1

REPORT INFORMATION
  Report Type: Spontaneous
  Country: CN (occurrence: CL)
  Receive Date: 20250123
  Receipt Date: 20250123
  Transmission Date: 20250409
  Serious: Yes (Hospitalization, Other)
  Sender: JIANGSU HANSOH PHARMACEUTICAL
  Company Number: CL-Jiangsu Hansoh Pharmaceutical Co., Ltd-2169627

PATIENT
  Age: 70 Year
  Sex: Male
  Weight: 60 kg

DRUGS (2)
  1. VINORELBINE TARTRATE [Suspect]
     Active Substance: VINORELBINE TARTRATE
     Indication: Sarcoma
     Dates: start: 20250101, end: 20250101
  2. VINORELBINE TARTRATE [Suspect]
     Active Substance: VINORELBINE TARTRATE
     Indication: Nasopharyngeal cancer

REACTIONS (18)
  - Ileus paralytic [Recovering/Resolving]
  - Off label use [Unknown]
  - Nausea [Recovering/Resolving]
  - Vomiting [Recovering/Resolving]
  - Scan abdomen abnormal [Unknown]
  - Cystic lung disease [Unknown]
  - Emphysema [Unknown]
  - Bone hypertrophy [Unknown]
  - Pelvic fluid collection [Unknown]
  - Prostatic calcification [Unknown]
  - Prostatomegaly [Unknown]
  - Cystitis [Unknown]
  - Oropharyngeal pain [Unknown]
  - Neck pain [Recovering/Resolving]
  - Headache [Recovered/Resolved]
  - Nephrocalcinosis [Unknown]
  - Pancreatic duct dilatation [Unknown]
  - Cholecystitis [Unknown]

NARRATIVE: CASE EVENT DATE: 20250101
